FAERS Safety Report 14898874 (Version 2)
Quarter: 2018Q2

REPORT INFORMATION
  Report Type: Report from Study
  Country: CO (occurrence: CO)
  Receive Date: 20180515
  Receipt Date: 20180619
  Transmission Date: 20180711
  Serious: Yes (Hospitalization, Other)
  Sender: FDA-Public Use
  Company Number: CO-AMGEN-COLSL2017161509

PATIENT
  Age: 34 Year
  Sex: Male

DRUGS (2)
  1. VECTIBIX [Suspect]
     Active Substance: PANITUMUMAB
     Indication: COLORECTAL CANCER METASTATIC
     Dosage: 390 MG, Q2WK
     Route: 042
     Dates: start: 20170725, end: 2017
  2. VECTIBIX [Suspect]
     Active Substance: PANITUMUMAB
     Dosage: 390 MG, Q2WK
     Route: 042

REACTIONS (5)
  - Infection [Not Recovered/Not Resolved]
  - Colorectal cancer recurrent [Not Recovered/Not Resolved]
  - Medical procedure [Unknown]
  - Intestinal obstruction [Not Recovered/Not Resolved]
  - Mobility decreased [Not Recovered/Not Resolved]

NARRATIVE: CASE EVENT DATE: 20171014
